FAERS Safety Report 18897959 (Version 1)
Quarter: 2021Q1

REPORT INFORMATION
  Report Type: Other
  Country: DE (occurrence: DE)
  Receive Date: 20210216
  Receipt Date: 20210216
  Transmission Date: 20210420
  Serious: Yes (Other)
  Sender: FDA-Public Use
  Company Number: DE-CELLTRION INC.-2021DE001492

PATIENT

DRUGS (13)
  1. CLEMASTINE [Concomitant]
     Active Substance: CLEMASTINE
     Indication: CHEMOTHERAPY SIDE EFFECT PROPHYLAXIS
     Dosage: 2 [MG/D ]/ 4 CYCLES DURING PREGNANCY: GW 20 2/7, 23 2/7, 26 1/7 AND 29 1/7.
     Route: 042
     Dates: start: 20190124, end: 20190326
  2. VINCRISTINE [Suspect]
     Active Substance: VINCRISTINE
     Indication: DIFFUSE LARGE B-CELL LYMPHOMA STAGE II
     Dosage: 2 [MG/D ]/ 4 CYCLES DURING PREGNANCY: GW 20 2/7, 23 2/7, 26 1/7 AND 29 1/7.
     Route: 041
     Dates: start: 20190124, end: 20190326
  3. DOXORUBICIN [Suspect]
     Active Substance: DOXORUBICIN
     Indication: DIFFUSE LARGE B-CELL LYMPHOMA STAGE II
     Dosage: 50 [MG/M2 ]/ 4 CYCLES DURING PREGNANCY: GW 20 2/7, 23 2/7, 26 1/7 AND 29 1/7
     Route: 041
     Dates: start: 20190124, end: 20190326
  4. PREDNISOLONE. [Concomitant]
     Active Substance: PREDNISOLONE
     Indication: DIFFUSE LARGE B-CELL LYMPHOMA STAGE II
     Dosage: 100 [MG/D ]/ PRE?PHASE: DAY 1?4 100 MG. CHOP (4X) WITH 100 MG PREDNISOLONE FROM DAY 1
     Route: 048
     Dates: start: 20190118, end: 20190326
  5. OLANZAPINE. [Concomitant]
     Active Substance: OLANZAPINE
     Indication: PRODUCT USED FOR UNKNOWN INDICATION
     Dosage: 5 [MG/D (5?0?0, BEI BEDARF) ]
     Route: 048
     Dates: start: 20190325, end: 20190328
  6. ADDEL N [CHROMIC CHLORIDE;COPPER CHLORIDE DIHYDRATE;FERRIC CHLORIDE HE [Concomitant]
     Indication: PARENTERAL NUTRITION
     Dosage: UNK
     Route: 042
     Dates: start: 20190305, end: 20190328
  7. CYCLOPHOSPHAMIDE. [Suspect]
     Active Substance: CYCLOPHOSPHAMIDE
     Indication: DIFFUSE LARGE B-CELL LYMPHOMA STAGE II
     Dosage: 750 [MG/M2 ]/ 4 CYCLES DURING PREGNANCY: GW 20 2/7, 23 2/7, 26 1/7 AND 29 1/7
     Route: 041
     Dates: start: 20190124, end: 20190326
  8. OLIMEL [Concomitant]
     Active Substance: AMINO ACIDS\DEXTROSE\SOYBEAN OIL
     Indication: PARENTERAL NUTRITION
     Dosage: UNK
     Route: 051
     Dates: start: 20190213, end: 20190328
  9. RANITIDINE. [Concomitant]
     Active Substance: RANITIDINE
     Indication: CHEMOTHERAPY SIDE EFFECT PROPHYLAXIS
     Dosage: UNK
     Route: 042
     Dates: start: 20190124, end: 20190326
  10. CERNEVIT [Concomitant]
     Active Substance: VITAMINS
     Indication: PARENTERAL NUTRITION
     Dosage: UNK
     Route: 042
     Dates: start: 20190305, end: 20190328
  11. RITUXIMAB (UNKNOWN) [Suspect]
     Active Substance: RITUXIMAB
     Indication: DIFFUSE LARGE B-CELL LYMPHOMA STAGE II
     Dosage: 375 [MG/M2]/ 4 TIMES: GW 20 1/7, 23 1/7, 26 0/7 AND 29 0/7.
     Route: 041
     Dates: start: 20190123, end: 20190326
  12. GRANISETRON [Concomitant]
     Active Substance: GRANISETRON
     Indication: CHEMOTHERAPY SIDE EFFECT PROPHYLAXIS
     Dosage: 2 [MG/D ]/ 4 CYCLES DURING PREGNANCY: GW 20 2/7, 23 2/7, 26 1/7 AND 29 1/7.
     Route: 042
     Dates: start: 20190124, end: 20190326
  13. UROMITEXAN [Concomitant]
     Active Substance: MESNA
     Indication: CHEMOTHERAPY SIDE EFFECT PROPHYLAXIS
     Dosage: 1200 [MG/D (3X400) ]
     Route: 042
     Dates: start: 20190124, end: 20190326

REACTIONS (2)
  - Stillbirth [Unknown]
  - Maternal exposure during pregnancy [Unknown]
